FAERS Safety Report 21051189 (Version 1)
Quarter: 2022Q3

REPORT INFORMATION
  Report Type: Spontaneous
  Country: NL (occurrence: NL)
  Receive Date: 20220707
  Receipt Date: 20220707
  Transmission Date: 20221027
  Serious: Yes (Other)
  Sender: FDA-Public Use
  Company Number: None

PATIENT
  Age: 71 Year
  Sex: Male
  Weight: 74 kg

DRUGS (1)
  1. COLCHICINE [Suspect]
     Active Substance: COLCHICINE
     Indication: Gout
     Dosage: 1.5 MILLIGRAM DAILY; 3X A DAY 1, / BRAND NAME NOT SPECIFIED, FORM STRENGTH:0.5 MG, UNIT DOSE: 0.5 MG
     Dates: start: 202205, end: 20220602

REACTIONS (4)
  - Tardive dyskinesia [Recovered/Resolved]
  - Disorientation [Recovered/Resolved]
  - Hyperhidrosis [Recovered/Resolved]
  - Restlessness [Recovered/Resolved]

NARRATIVE: CASE EVENT DATE: 20220601
